FAERS Safety Report 11697710 (Version 3)
Quarter: 2017Q4

REPORT INFORMATION
  Report Type: Spontaneous
  Country: US (occurrence: US)
  Receive Date: 20151104
  Receipt Date: 20171020
  Transmission Date: 20180320
  Serious: No
  Sender: FDA-Public Use
  Company Number: US-PFIZER INC-2015369977

PATIENT
  Age: 60 Year
  Sex: Female

DRUGS (18)
  1. FLUTICASONE PROPIONATE. [Concomitant]
     Active Substance: FLUTICASONE PROPIONATE
     Dosage: UNK
  2. XELJANZ [Suspect]
     Active Substance: TOFACITINIB CITRATE
     Dosage: 5 MG, 2X/DAY
     Route: 048
  3. XELJANZ [Suspect]
     Active Substance: TOFACITINIB CITRATE
     Indication: RHEUMATOID ARTHRITIS
     Dosage: 5 MG, TWICE DAILY
     Route: 048
     Dates: start: 20150908
  4. HYDROCODONE/PARACETAMOL [Concomitant]
     Dosage: UNK
  5. TUSSIN COUGH [Concomitant]
     Active Substance: DEXTROMETHORPHAN HYDROBROMIDE
     Dosage: UNK
  6. HYDROCODONE/ACETAMINOPHEN [Concomitant]
     Active Substance: ACETAMINOPHEN\HYDROCODONE
     Dosage: UNK
  7. IBUPROFEN. [Concomitant]
     Active Substance: IBUPROFEN
     Dosage: UNK
  8. DIAZEPAM. [Concomitant]
     Active Substance: DIAZEPAM
     Dosage: 5 MG, UNK
     Dates: start: 2017
  9. LAMISIL [Concomitant]
     Active Substance: TERBINAFINE HYDROCHLORIDE
     Dosage: 250 MG, UNK
  10. SODIUM [Concomitant]
     Active Substance: SODIUM
     Dosage: UNK
  11. HYDROXYCHLOROQUINE SULFATE. [Concomitant]
     Active Substance: HYDROXYCHLOROQUINE SULFATE
     Dosage: UNK
  12. XELJANZ [Suspect]
     Active Substance: TOFACITINIB CITRATE
     Dosage: 5 MG, 2X/DAY
     Route: 048
  13. PREDNISONE. [Concomitant]
     Active Substance: PREDNISONE
     Dosage: UNK
  14. METHOTREXATE. [Concomitant]
     Active Substance: METHOTREXATE
     Dosage: UNK
  15. OMEPRAZOLE. [Concomitant]
     Active Substance: OMEPRAZOLE
     Dosage: UNK
  16. VOLTAREN [Concomitant]
     Active Substance: DICLOFENAC SODIUM
     Dosage: SOLUTION 0.1 % OP
  17. FETZIMA [Concomitant]
     Active Substance: LEVOMILNACIPRAN HYDROCHLORIDE
     Dosage: UNK
  18. ALPRAZOLAM. [Concomitant]
     Active Substance: ALPRAZOLAM
     Dosage: UNK

REACTIONS (4)
  - Fall [Unknown]
  - Nausea [Recovered/Resolved]
  - Headache [Not Recovered/Not Resolved]
  - Sinus congestion [Not Recovered/Not Resolved]

NARRATIVE: CASE EVENT DATE: 20150929
